FAERS Safety Report 5006163-1 (Version None)
Quarter: 2006Q1

REPORT INFORMATION
  Report Type: 
  Country: None (occurrence: None)
  Receive Date: 20060328
  Receipt Date: 20050302
  Transmission Date: 20060701
  Serious: Yes (Hospitalization)
  Sender: FDA-Public Use
  Company Number: K200500328

PATIENT
  Age: 80 Year
  Sex: Female

DRUGS (2)
  1. ALTACE [Suspect]
     Indication: PROPHYLAXIS
     Dosage: 10 MG, QD, ORAL
     Route: 048
     Dates: start: 20050201, end: 20050201
  2. DIABETIC MEDICATIONS [Concomitant]

REACTIONS (2)
  - ANGIONEUROTIC OEDEMA [None]
  - SWELLING FACE [None]
